FAERS Safety Report 8438754-X (Version None)
Quarter: 2012Q2

REPORT INFORMATION
  Report Type: 
  Country: None (occurrence: None)
  Receive Date: 20120611
  Receipt Date: 20120611
  Transmission Date: 20120825
  Serious: Yes (Other)
  Sender: FDA-Public Use
  Company Number: None

PATIENT
  Sex: Male
  Weight: 39.4629 kg

DRUGS (1)
  1. LAMOTRIGINE [Suspect]
     Indication: BIPOLAR DISORDER
     Dosage: 50 MG QHS PO
     Route: 048
     Dates: start: 20120607, end: 20120607

REACTIONS (2)
  - RASH GENERALISED [None]
  - PRURITUS [None]
